FAERS Safety Report 7590734-2 (Version None)
Quarter: 2011Q3

REPORT INFORMATION
  Report Type: 
  Country: None (occurrence: None)
  Receive Date: 20110705
  Receipt Date: 20110621
  Transmission Date: 20111222
  Serious: Yes (Hospitalization)
  Sender: FDA-Public Use
  Company Number: PHHY2010JP43199

PATIENT
  Sex: Male
  Weight: 53 kg

DRUGS (5)
  1. CARVEDILOL [Concomitant]
     Indication: HYPERTENSION
     Dosage: 10 MG
     Route: 048
     Dates: start: 20091109
  2. BUFFERIN [Concomitant]
     Dosage: 81 MG
     Route: 048
     Dates: start: 20080519
  3. VALSARTAN [Suspect]
     Indication: HYPERTENSION
     Dosage: 80 MG, QD
     Route: 048
     Dates: start: 20080519, end: 20100215
  4. ULGUT [Concomitant]
     Dosage: 200 MG
     Route: 048
     Dates: start: 20091109
  5. PRAVASTATIN SODIUM [Concomitant]
     Dosage: 10 MG
     Route: 048
     Dates: start: 20091109

REACTIONS (2)
  - AORTIC ANEURYSM RUPTURE [None]
  - BLOOD UREA INCREASED [None]
